FAERS Safety Report 13535406 (Version 1)
Quarter: 2017Q2

REPORT INFORMATION
  Report Type: Spontaneous
  Country: US (occurrence: US)
  Receive Date: 20170510
  Receipt Date: 20170510
  Transmission Date: 20170830
  Serious: No
  Sender: FDA-Public Use
  Company Number: None

PATIENT
  Age: 51 Year
  Sex: Female

DRUGS (1)
  1. HUMIRA [Suspect]
     Active Substance: ADALIMUMAB
     Indication: PSORIASIS
     Dosage: 40MG EVERY OTHER WEEK SUB-Q
     Route: 058
     Dates: start: 20161208, end: 20170426

REACTIONS (6)
  - Scar [None]
  - Sleep disorder [None]
  - Incision site infection [None]
  - Visual impairment [None]
  - Migraine [None]
  - Psoriasis [None]

NARRATIVE: CASE EVENT DATE: 20170115
